FAERS Safety Report 7846421-6 (Version None)
Quarter: 2011Q4

REPORT INFORMATION
  Report Type: 
  Country: None (occurrence: None)
  Receive Date: 20111025
  Receipt Date: 20111025
  Transmission Date: 20120403
  Serious: Yes (Hospitalization)
  Sender: FDA-Public Use
  Company Number: None

PATIENT
  Sex: Male
  Weight: 62.256 kg

DRUGS (22)
  1. XOPENEX [Concomitant]
  2. ANCEF [Concomitant]
     Route: 042
  3. ZYPREXA [Concomitant]
     Route: 048
  4. PROSCAR [Concomitant]
     Route: 048
  5. BACTROBAN TOPICAL [Concomitant]
  6. HYDROGEN PEROXIDE SOLUTION [Concomitant]
  7. ZITHROMAX [Concomitant]
     Route: 042
  8. HALDOL [Concomitant]
     Route: 042
  9. LOVENOX [Concomitant]
     Route: 042
  10. ZOFRAN [Concomitant]
     Route: 042
  11. FLAGYL [Concomitant]
     Route: 042
  12. ATIVAN [Concomitant]
     Route: 048
  13. MIRALAX [Concomitant]
     Route: 048
  14. SYNTHROID [Concomitant]
     Route: 048
  15. SYNTHROID [Concomitant]
     Route: 042
  16. PROTONIX IV [Suspect]
     Indication: HIATUS HERNIA
     Dosage: 40 MG
     Route: 040
     Dates: start: 20110503, end: 20110506
  17. PROTONIX IV [Suspect]
     Indication: MALLORY-WEISS SYNDROME
     Dosage: 40 MG
     Route: 040
     Dates: start: 20110503, end: 20110506
  18. PROTONIX IV [Suspect]
     Indication: GASTROOESOPHAGEAL REFLUX DISEASE
     Dosage: 40 MG
     Route: 040
     Dates: start: 20110503, end: 20110506
  19. ANCEF [Concomitant]
     Route: 042
  20. TYLENOL-500 [Concomitant]
     Route: 048
  21. MYCOSTATIN POWDER [Concomitant]
  22. PRIMAXIN [Concomitant]
     Route: 042

REACTIONS (4)
  - BLISTER [None]
  - INFUSION SITE EXTRAVASATION [None]
  - ERYTHEMA [None]
  - SWELLING [None]
